FAERS Safety Report 12755259 (Version 3)
Quarter: 2017Q3

REPORT INFORMATION
  Report Type: Spontaneous
  Country: BR (occurrence: BR)
  Receive Date: 20160916
  Receipt Date: 20170706
  Transmission Date: 20171127
  Serious: Yes (Death, Other)
  Sender: FDA-Public Use
  Company Number: PHHY2016BR126021

PATIENT
  Age: 70 Year
  Sex: Male

DRUGS (7)
  1. REVOLADE [Suspect]
     Active Substance: ELTROMBOPAG
     Indication: APLASTIC ANAEMIA
     Dosage: 50 MG, QD
     Route: 065
     Dates: start: 201301
  2. REVOLADE [Suspect]
     Active Substance: ELTROMBOPAG
     Dosage: 150 MG, QD
     Route: 065
     Dates: start: 20130314, end: 201310
  3. REVOLADE [Suspect]
     Active Substance: ELTROMBOPAG
     Dosage: UNK
     Route: 065
     Dates: start: 201407
  4. REVOLADE [Suspect]
     Active Substance: ELTROMBOPAG
     Dosage: 75 MG, QD
     Route: 065
     Dates: start: 201505
  5. EXJADE [Suspect]
     Active Substance: DEFERASIROX
     Indication: PRODUCT USED FOR UNKNOWN INDICATION
     Dosage: 15 MG/KG, QD
     Route: 065
     Dates: end: 201505
  6. REVOLADE [Suspect]
     Active Substance: ELTROMBOPAG
     Dosage: 150 MG, QD
     Route: 065
     Dates: end: 201507
  7. REVOLADE [Suspect]
     Active Substance: ELTROMBOPAG
     Dosage: UNK
     Route: 065
     Dates: start: 201404

REACTIONS (22)
  - Abdominal pain [Unknown]
  - Aspartate aminotransferase increased [Recovered/Resolved]
  - Alanine aminotransferase increased [Recovered/Resolved]
  - Therapy partial responder [Unknown]
  - Hyperaemia [Unknown]
  - Dysplasia [Unknown]
  - Basal cell carcinoma [Unknown]
  - Neutrophil count decreased [Unknown]
  - Karyotype analysis abnormal [Unknown]
  - Asthenia [Unknown]
  - Renal impairment [Unknown]
  - Clonal evolution [Unknown]
  - Acute myeloid leukaemia [Unknown]
  - Blood uric acid increased [Unknown]
  - Decreased appetite [Unknown]
  - Hepatic enzyme abnormal [Recovered/Resolved]
  - Blood creatinine increased [Unknown]
  - Death [Fatal]
  - Malignant melanoma [Unknown]
  - Haemoglobin decreased [Unknown]
  - Platelet count decreased [Unknown]
  - Blood lactate dehydrogenase increased [Unknown]

NARRATIVE: CASE EVENT DATE: 201511
